FAERS Safety Report 13515561 (Version 1)
Quarter: 2017Q2

REPORT INFORMATION
  Report Type: Spontaneous
  Country: US (occurrence: US)
  Receive Date: 20170504
  Receipt Date: 20170504
  Transmission Date: 20170830
  Serious: No
  Sender: FDA-Public Use
  Company Number: US-ACTELION-A-US2017-153303

PATIENT
  Age: 43 Year
  Sex: Female

DRUGS (3)
  1. UPTRAVI [Suspect]
     Active Substance: SELEXIPAG
     Indication: PRODUCT USED FOR UNKNOWN INDICATION
     Dosage: 1600 MCG, UNK
     Route: 048
  2. ADCIRCA [Concomitant]
     Active Substance: TADALAFIL
  3. AMBRISENTAN [Suspect]
     Active Substance: AMBRISENTAN
     Indication: PRODUCT USED FOR UNKNOWN INDICATION
     Dosage: 10 MG, QD
     Route: 065

REACTIONS (9)
  - Flushing [Unknown]
  - Pain in jaw [Unknown]
  - Myalgia [Unknown]
  - Arthralgia [Unknown]
  - Viral upper respiratory tract infection [Unknown]
  - Nasal congestion [Unknown]
  - Back pain [Unknown]
  - Nausea [Unknown]
  - Headache [Unknown]
